FAERS Safety Report 6537898-7 (Version None)
Quarter: 2010Q1

REPORT INFORMATION
  Report Type: 
  Country: None (occurrence: None)
  Receive Date: 20100114
  Receipt Date: 20100111
  Transmission Date: 20100710
  Serious: Yes (Other)
  Sender: FDA-Public Use
  Company Number: US-MERCK-1001USA00720

PATIENT
  Age: 60 Year
  Sex: Male

DRUGS (8)
  1. ZETIA [Suspect]
     Indication: BLOOD CHOLESTEROL
     Route: 048
     Dates: start: 20060301
  2. SYNTHROID [Concomitant]
     Route: 065
  3. METROL (METOPROLOL TARTRATE) [Concomitant]
     Route: 065
  4. PLAVIX [Concomitant]
     Route: 065
  5. WELCHOL [Concomitant]
     Route: 065
  6. LOVAZA [Concomitant]
     Route: 065
  7. TRANDOLAPRIL [Concomitant]
     Route: 065
  8. ASPIRIN [Concomitant]
     Route: 065

REACTIONS (3)
  - ASTHENIA [None]
  - CARDIAC DISORDER [None]
  - FATIGUE [None]
